FAERS Safety Report 5536020-3 (Version None)
Quarter: 2007Q4

REPORT INFORMATION
  Report Type: 
  Country: None (occurrence: None)
  Receive Date: 20071204
  Receipt Date: 20071125
  Transmission Date: 20080405
  Serious: Yes (Hospitalization)
  Sender: FDA-Public Use
  Company Number: 2007US002893

PATIENT
  Age: 8 Year
  Sex: Female
  Weight: 17.9 kg

DRUGS (24)
  1. PROGRAF [Suspect]
     Indication: RENAL TRANSPLANT
     Dates: start: 20051203
  2. ZENAPAX [Suspect]
     Indication: RENAL TRANSPLANT
     Dosage: 35 MG, OTHER, IV NOS; 25 MG, OTHER, IV NOS; 18 MG, MONTHLY, IV NOS
     Route: 042
     Dates: start: 20051203, end: 20051203
  3. ZENAPAX [Suspect]
     Indication: RENAL TRANSPLANT
     Dosage: 35 MG, OTHER, IV NOS; 25 MG, OTHER, IV NOS; 18 MG, MONTHLY, IV NOS
     Route: 042
     Dates: start: 20051216, end: 20051216
  4. ZENAPAX [Suspect]
     Indication: RENAL TRANSPLANT
     Dosage: 35 MG, OTHER, IV NOS; 25 MG, OTHER, IV NOS; 18 MG, MONTHLY, IV NOS
     Route: 042
     Dates: start: 20060221, end: 20060221
  5. ZENAPAX [Suspect]
     Indication: RENAL TRANSPLANT
     Dosage: 35 MG, OTHER, IV NOS; 25 MG, OTHER, IV NOS; 18 MG, MONTHLY, IV NOS
     Route: 042
     Dates: start: 20060320, end: 20060515
  6. ASPIRIN [Concomitant]
  7. REGLAN [Concomitant]
  8. PREVACID [Concomitant]
  9. MULTIVITAMIN [Concomitant]
  10. IRON (IRON) [Concomitant]
  11. MAGNESIUM OXIDE (MAGNESIUM OXIDE) [Concomitant]
  12. NEUPOGEN [Concomitant]
  13. FLONASE [Concomitant]
  14. ISRADIPINE [Concomitant]
  15. COLACE (DOCUSATE SODIUM) [Concomitant]
  16. CEFUROXIME [Concomitant]
  17. CYCLOSPORINE [Concomitant]
  18. VALCYTE (VALGANCICLOVIR HYDROCHORIDE) [Concomitant]
  19. MIRALAX [Concomitant]
  20. SINGULAIR (MONELUKAST) [Concomitant]
  21. BECLOMETHASONE DIPROPIONATE [Concomitant]
  22. INSULIN HUMULIN (INSULIN HUMAN, INSULIN HUMAN INJECTION, ISOPHANE) [Concomitant]
  23. RAPAMUNE [Concomitant]
  24. EPOGEN [Concomitant]

REACTIONS (4)
  - ATELECTASIS [None]
  - CENTRAL LINE INFECTION [None]
  - LUNG DISORDER [None]
  - PLEURAL EFFUSION [None]
